FAERS Safety Report 15886806 (Version 1)
Quarter: 2019Q1

REPORT INFORMATION
  Report Type: Spontaneous
  Country: FR (occurrence: FR)
  Receive Date: 20190129
  Receipt Date: 20190129
  Transmission Date: 20190417
  Serious: Yes (Other)
  Sender: FDA-Public Use
  Company Number: FR-ROCHE-2250743

PATIENT
  Age: 65 Year
  Sex: Female
  Weight: 62.7 kg

DRUGS (7)
  1. PERFALGAN [Suspect]
     Active Substance: ACETAMINOPHEN
     Indication: PREMEDICATION
     Dosage: MOST RECENT DOSE ON 20/DEC/2018.
     Route: 042
     Dates: start: 20181220
  2. CHLORAMBUCIL [Suspect]
     Active Substance: CHLORAMBUCIL
     Indication: CHRONIC LYMPHOCYTIC LEUKAEMIA
     Route: 048
     Dates: start: 20181220
  3. SOLU-MEDROL [Suspect]
     Active Substance: METHYLPREDNISOLONE SODIUM SUCCINATE
     Indication: PREMEDICATION
     Dosage: MOST RECENT DOSE ON 20/DEC/2018.
     Route: 042
     Dates: start: 20181220
  4. ZOPHREN [Suspect]
     Active Substance: ONDANSETRON
     Indication: PREMEDICATION
     Dosage: STRENGTH: 8 MG/ 4 ML.
     Route: 042
     Dates: start: 20181220
  5. POLARAMINE [Suspect]
     Active Substance: DEXCHLORPHENIRAMINE MALEATE
     Indication: PREMEDICATION
     Dosage: MOST RECENT DOSE ON 20/DEC/2018.
     Route: 042
     Dates: start: 20181220
  6. GAZYVARO [Suspect]
     Active Substance: OBINUTUZUMAB
     Indication: CHRONIC LYMPHOCYTIC LEUKAEMIA
     Dosage: MOST RECENT DOSE ON 20/DEC/2018.
     Route: 042
     Dates: start: 20181220
  7. FASTURTEC [Suspect]
     Active Substance: RASBURICASE
     Indication: PREMEDICATION
     Dosage: MOST RECENT DOSE ON 20/DEC/2018.
     Route: 042
     Dates: start: 20181220

REACTIONS (2)
  - Cholestasis [Not Recovered/Not Resolved]
  - Hepatocellular injury [Not Recovered/Not Resolved]

NARRATIVE: CASE EVENT DATE: 20181221
